FAERS Safety Report 4377320-2 (Version None)
Quarter: 2004Q2

REPORT INFORMATION
  Report Type: 
  Country: None (occurrence: None)
  Receive Date: 20040609
  Receipt Date: 20040413
  Transmission Date: 20050107
  Serious: No
  Sender: FDA-Public Use
  Company Number: 2004209181US

PATIENT
  Age: 54 Year
  Sex: Female

DRUGS (3)
  1. BEXTRA [Suspect]
     Indication: INFLAMMATION LOCALISED
     Dosage: 20 MG, QD
     Dates: start: 20040403
  2. NEXIUM [Concomitant]
  3. BLACK COHOSH (CIMICIFUGA) [Concomitant]

REACTIONS (1)
  - NASAL CONGESTION [None]
